FAERS Safety Report 12933711 (Version 1)
Quarter: 2016Q4

REPORT INFORMATION
  Report Type: Spontaneous
  Country: FR (occurrence: FR)
  Receive Date: 20161111
  Receipt Date: 20161111
  Transmission Date: 20170207
  Serious: Yes (Other)
  Sender: FDA-Public Use
  Company Number: PHHY2016FR152986

PATIENT
  Age: 6 Month
  Sex: Male

DRUGS (2)
  1. AMOXICILLIN CLAVULANIC ACID SANDOZ [Suspect]
     Active Substance: AMOXICILLIN\CLAVULANIC ACID
     Indication: BRONCHIOLITIS
     Route: 065
  2. CELESTENE [Concomitant]
     Active Substance: BETAMETHASONE
     Indication: BRONCHIOLITIS
     Route: 065

REACTIONS (2)
  - Otitis media [Recovered/Resolved]
  - Bronchiolitis [Recovered/Resolved]
